FAERS Safety Report 5014748-1 (Version None)
Quarter: 2006Q2

REPORT INFORMATION
  Report Type: 
  Country: None (occurrence: None)
  Receive Date: 20060531
  Receipt Date: 20050323
  Transmission Date: 20061013
  Serious: Yes (Disabling)
  Sender: FDA-Public Use
  Company Number: DE-GLAXOSMITHKLINE-D0046214A

PATIENT
  Age: 70 Year
  Sex: Male
  Weight: 100 kg

DRUGS (7)
  1. AVANDAMET [Suspect]
     Dosage: 2TAB PER DAY
     Route: 048
     Dates: start: 20050301, end: 20051201
  2. METFORMIN [Concomitant]
     Route: 065
  3. AMARYL [Concomitant]
     Dosage: 6MG PER DAY
     Route: 048
  4. KARVEZIDE [Concomitant]
     Dosage: 312.5MG PER DAY
     Route: 048
  5. CONCOR [Concomitant]
     Dosage: 5MG PER DAY
     Route: 048
     Dates: start: 20050401
  6. ISCOVER [Concomitant]
     Dosage: 75MG PER DAY
     Route: 048
     Dates: start: 20050401
  7. ASPIRIN [Concomitant]
     Dosage: 100MG PER DAY
     Route: 048
     Dates: start: 20050401, end: 20060401

REACTIONS (5)
  - DIARRHOEA [None]
  - FEELING COLD [None]
  - MACULAR OEDEMA [None]
  - NAUSEA [None]
  - PALLOR [None]
